FAERS Safety Report 18630404 (Version 1)
Quarter: 2020Q4

REPORT INFORMATION
  Report Type: Spontaneous
  Country: BE (occurrence: BE)
  Receive Date: 20201218
  Receipt Date: 20201218
  Transmission Date: 20210114
  Serious: Yes (Other)
  Sender: FDA-Public Use
  Company Number: BE-NOVAST LABORATORIES LTD.-2020NOV000344

PATIENT
  Age: 57 Year
  Sex: Male

DRUGS (6)
  1. PYRIDOSTIGMINE [Suspect]
     Active Substance: PYRIDOSTIGMINE
     Dosage: 360 MILLIGRAM
     Route: 065
  2. METHYLPREDNISOLONE. [Suspect]
     Active Substance: METHYLPREDNISOLONE
     Indication: MYASTHENIA GRAVIS
     Dosage: 64 MILLIGRAM
     Route: 048
  3. METHYLPREDNISOLONE. [Suspect]
     Active Substance: METHYLPREDNISOLONE
     Dosage: 58 MILLIGRAM
     Route: 048
  4. PYRIDOSTIGMINE [Suspect]
     Active Substance: PYRIDOSTIGMINE
     Indication: MYASTHENIA GRAVIS
     Dosage: 720 MILLIGRAM
     Route: 065
  5. TACROLIMUS. [Concomitant]
     Active Substance: TACROLIMUS
     Indication: MYASTHENIA GRAVIS
     Dosage: 3 MILLIGRAM
     Route: 065
  6. METHYLPREDNISOLONE. [Suspect]
     Active Substance: METHYLPREDNISOLONE
     Dosage: 4 MILLIGRAM
     Route: 048

REACTIONS (4)
  - Eye luxation [Recovered/Resolved]
  - Cushingoid [Recovered/Resolved]
  - Intraocular pressure increased [Recovered/Resolved]
  - Myopathy [Recovered/Resolved]
